FAERS Safety Report 7978134-4 (Version None)
Quarter: 2011Q4

REPORT INFORMATION
  Report Type: 
  Country: None (occurrence: None)
  Receive Date: 20111206
  Receipt Date: 20111201
  Transmission Date: 20120403
  Serious: Yes (Life-Threatening, Hospitalization)
  Sender: FDA-Public Use
  Company Number: 2011SP052099

PATIENT
  Age: 46 Year
  Sex: Female
  Weight: 77.7 kg

DRUGS (7)
  1. PEGINTERFERON ALFA-2B [Suspect]
     Indication: HEPATITIS C
     Dosage: 150 MCG;QW;SC
     Route: 058
     Dates: start: 20110921, end: 20111102
  2. RIBAVIRIN [Suspect]
     Indication: HEPATITIS C
     Dosage: 1400 MG;QD;PO
     Route: 048
     Dates: start: 20110921, end: 20111102
  3. OXYCODONE HCL [Concomitant]
  4. METHADONE HCL [Concomitant]
  5. VICTRELIS [Suspect]
     Indication: HEPATITIS C
     Dosage: 800 MG;TID;PO
     Route: 048
     Dates: start: 20111026, end: 20111102
  6. ALDACTONE [Concomitant]
  7. EFFEXOR XR [Concomitant]

REACTIONS (6)
  - STAPHYLOCOCCUS TEST POSITIVE [None]
  - SEPSIS [None]
  - PNEUMONIA [None]
  - ACUTE RESPIRATORY DISTRESS SYNDROME [None]
  - PSEUDOMONAS TEST POSITIVE [None]
  - RESPIRATORY FAILURE [None]
